FAERS Safety Report 11866150 (Version 1)
Quarter: 2015Q4

REPORT INFORMATION
  Report Type: Report from Study
  Country: US (occurrence: US)
  Receive Date: 20151223
  Receipt Date: 20151223
  Transmission Date: 20160305
  Serious: No
  Sender: FDA-Public Use
  Company Number: US-EXELIXIS-CABO-15005763

PATIENT
  Age: 80 Year
  Sex: Male

DRUGS (9)
  1. ATENOLOL. [Concomitant]
     Active Substance: ATENOLOL
  2. GABAPENTIN. [Concomitant]
     Active Substance: GABAPENTIN
  3. COMETRIQ [Suspect]
     Active Substance: CABOZANTINIB S-MALATE
     Indication: PROSTATE CANCER
     Dosage: 100 MG, QD
     Route: 048
     Dates: start: 20151009, end: 201510
  4. ONDANSETRON [Concomitant]
     Active Substance: ONDANSETRON
  5. HYDROCODONE [Concomitant]
     Active Substance: HYDROCODONE
  6. LASIX [Concomitant]
     Active Substance: FUROSEMIDE
  7. PREDNISOLONE. [Concomitant]
     Active Substance: PREDNISOLONE
  8. ALLOPURINOL. [Concomitant]
     Active Substance: ALLOPURINOL
  9. PRILOSEC [Concomitant]
     Active Substance: OMEPRAZOLE MAGNESIUM

REACTIONS (4)
  - Laboratory test abnormal [Unknown]
  - Dyspnoea [Unknown]
  - Off label use [Unknown]
  - Adverse drug reaction [Unknown]

NARRATIVE: CASE EVENT DATE: 20151014
